FAERS Safety Report 4973611-2 (Version None)
Quarter: 2006Q2

REPORT INFORMATION
  Report Type: 
  Country: None (occurrence: None)
  Receive Date: 20060413
  Receipt Date: 20060413
  Transmission Date: 20061013
  Serious: Yes (Hospitalization)
  Sender: FDA-Public Use
  Company Number: None

PATIENT
  Age: 67 Year
  Sex: Male

DRUGS (13)
  1. LITHIUM CARBONATE [Suspect]
     Indication: BIPOLAR DISORDER
     Dosage: 600  QAM  PO
     Route: 048
     Dates: start: 20050527, end: 20060112
  2. LITHIUM CARBONATE [Suspect]
     Dosage: 300   QPM   PO
     Route: 048
     Dates: start: 20050527, end: 20060212
  3. NAPROSYN [Concomitant]
     Dosage: PRN
  4. CHLORPHENIRAMINE MALEATE [Concomitant]
  5. TRIAMTERENE AND HYDROCHLOROTHIAZIDE [Concomitant]
  6. FIORINAL PRN [Concomitant]
  7. LOXAPINE [Concomitant]
  8. FELODIPINE [Concomitant]
  9. TRIHEXAPHENADINE [Concomitant]
  10. LISINOPRIL [Concomitant]
  11. PROPRANOLOL [Concomitant]
  12. ASPIRIN [Concomitant]
  13. PLAVIX [Concomitant]

REACTIONS (7)
  - ABASIA [None]
  - CONDITION AGGRAVATED [None]
  - DYSARTHRIA [None]
  - NEUROLOGICAL SYMPTOM [None]
  - RENAL FAILURE ACUTE [None]
  - SPEECH DISORDER [None]
  - THERAPEUTIC AGENT TOXICITY [None]
